FAERS Safety Report 6013237-5 (Version None)
Quarter: 2008Q4

REPORT INFORMATION
  Report Type: 
  Country: None (occurrence: None)
  Receive Date: 20081219
  Receipt Date: 20081216
  Transmission Date: 20090506
  Serious: Yes (Hospitalization)
  Sender: FDA-Public Use
  Company Number: FR-WYE-G02793508

PATIENT
  Sex: Female

DRUGS (8)
  1. EFFEXOR [Suspect]
     Indication: DEPRESSION
     Route: 048
     Dates: start: 20081004, end: 20081007
  2. EFFEXOR [Suspect]
     Dosage: UNKNOWN
     Route: 048
     Dates: start: 20081009, end: 20081014
  3. METEOXANE [Concomitant]
     Dosage: UNKNOWN
     Route: 048
  4. JASMINELLE [Concomitant]
     Indication: ORAL CONTRACEPTION
     Route: 048
  5. STRESAM [Suspect]
     Indication: ANXIETY
     Route: 048
     Dates: start: 20081004, end: 20081007
  6. STRESAM [Suspect]
     Dosage: UNKNOWN
     Route: 048
     Dates: start: 20081009, end: 20081014
  7. MOTILIUM [Suspect]
     Route: 048
     Dates: start: 20081006, end: 20081007
  8. MOTILIUM [Suspect]
     Dosage: UNKNOWN
     Route: 048
     Dates: start: 20081012, end: 20081014

REACTIONS (6)
  - DRUG WITHDRAWAL SYNDROME [None]
  - ELECTROCARDIOGRAM QT PROLONGED [None]
  - ELECTROCARDIOGRAM T WAVE ABNORMAL [None]
  - HEADACHE [None]
  - LONG QT SYNDROME [None]
  - SYNCOPE [None]
